FAERS Safety Report 6801045-4 (Version None)
Quarter: 2010Q2

REPORT INFORMATION
  Report Type: 
  Country: None (occurrence: None)
  Receive Date: 20100629
  Receipt Date: 20100617
  Transmission Date: 20101027
  Serious: Yes (Congenital Anomaly)
  Sender: FDA-Public Use
  Company Number: JP-ELI_LILLY_AND_COMPANY-JP201006004561

PATIENT

DRUGS (2)
  1. ZYPREXA [Suspect]
     Dosage: 7.5 MG, UNK
     Route: 064
     Dates: end: 20100602
  2. MAGMITT [Concomitant]
     Dosage: 990 MG, UNK
     Route: 064
     Dates: end: 20100602

REACTIONS (2)
  - DRUG EXPOSURE DURING PREGNANCY [None]
  - MULTIPLE CONGENITAL ABNORMALITIES [None]
